FAERS Safety Report 5603390-7 (Version None)
Quarter: 2008Q1

REPORT INFORMATION
  Report Type: 
  Country: None (occurrence: None)
  Receive Date: 20080123
  Receipt Date: 20080103
  Transmission Date: 20080703
  Serious: No
  Sender: FDA-Public Use
  Company Number: 8028910

PATIENT
  Sex: Male
  Weight: 32 kg

DRUGS (2)
  1. EQUASYM [Suspect]
     Dosage: 20 MG 1/D
     Dates: start: 20061130
  2. METHYLPHENIDATE HCL [Concomitant]

REACTIONS (3)
  - SLEEP DISORDER [None]
  - SOCIAL AVOIDANT BEHAVIOUR [None]
  - TIC [None]
